FAERS Safety Report 13891738 (Version 1)
Quarter: 2017Q3

REPORT INFORMATION
  Report Type: Spontaneous
  Country: TH (occurrence: TH)
  Receive Date: 20170822
  Receipt Date: 20170822
  Transmission Date: 20171127
  Serious: Yes (Hospitalization)
  Sender: FDA-Public Use
  Company Number: TH-SHENZHEN TECHDOW PHARMACEUTICAL CO. LTD-TH-2017TEC0000050

PATIENT

DRUGS (2)
  1. HEPARIN SODIUM INJECTION USP, PRESERVATIVE FREE [Suspect]
     Active Substance: HEPARIN SODIUM
     Indication: CEREBRAL VENOUS THROMBOSIS
     Dosage: UNK
     Route: 042
  2. WARFARIN [Concomitant]
     Active Substance: WARFARIN
     Indication: CEREBRAL VENOUS THROMBOSIS
     Dosage: UNK
     Route: 048

REACTIONS (2)
  - Extradural haematoma [Recovered/Resolved]
  - Subdural haematoma [Recovered/Resolved]
